FAERS Safety Report 4511428-3 (Version None)
Quarter: 2004Q4

REPORT INFORMATION
  Report Type: 
  Country: None (occurrence: None)
  Receive Date: 20041129
  Receipt Date: 20040803
  Transmission Date: 20050328
  Serious: No
  Sender: FDA-Public Use
  Company Number: US-BRISTOL-MYERS SQUIBB COMPANY-12663571

PATIENT
  Sex: Female

DRUGS (2)
  1. ABILIFY [Suspect]
     Dosage: DURATION OF THERAPY: A FEW MONTHS
  2. SPEED [Concomitant]

REACTIONS (1)
  - HYPERKINESIA [None]
